FAERS Safety Report 5661699-5 (Version None)
Quarter: 2008Q1

REPORT INFORMATION
  Report Type: 
  Country: None (occurrence: None)
  Receive Date: 20080312
  Receipt Date: 20080305
  Transmission Date: 20080703
  Serious: Yes (Other)
  Sender: FDA-Public Use
  Company Number: A0713544A

PATIENT
  Age: 48 Year
  Sex: Male

DRUGS (7)
  1. WELLBUTRIN SR [Suspect]
     Indication: DEPRESSION
     Dosage: 300MG PER DAY
     Route: 048
     Dates: start: 20080101, end: 20080101
  2. CELEXA [Concomitant]
  3. METHADONE HCL [Concomitant]
  4. FENTANYL TRANSDERMAL SYSTEM [Concomitant]
  5. COZAAR [Concomitant]
  6. KLONOPIN [Concomitant]
  7. MESALAMINE [Concomitant]

REACTIONS (5)
  - DEPERSONALISATION [None]
  - HALLUCINATION, AUDITORY [None]
  - MEMORY IMPAIRMENT [None]
  - MENTAL STATUS CHANGES [None]
  - NERVOUS SYSTEM DISORDER [None]
